FAERS Safety Report 7721661-5 (Version None)
Quarter: 2011Q3

REPORT INFORMATION
  Report Type: 
  Country: None (occurrence: None)
  Receive Date: 20110831
  Receipt Date: 20110823
  Transmission Date: 20111222
  Serious: Yes (Hospitalization)
  Sender: FDA-Public Use
  Company Number: US-GLAXOSMITHKLINE-A0934952A

PATIENT
  Age: 31 Year
  Sex: Female

DRUGS (3)
  1. LAMICTAL [Suspect]
     Indication: BIPOLAR DISORDER
     Dosage: 25MG TWICE PER DAY
     Route: 048
     Dates: start: 20110622, end: 20110701
  2. IBUPROFEN [Concomitant]
  3. ZYPREXA [Concomitant]

REACTIONS (11)
  - ACNE [None]
  - FEELING OF BODY TEMPERATURE CHANGE [None]
  - WHITE BLOOD CELL COUNT DECREASED [None]
  - RASH MACULO-PAPULAR [None]
  - PYREXIA [None]
  - FATIGUE [None]
  - HYPOAESTHESIA [None]
  - DRUG ADMINISTRATION ERROR [None]
  - ERYTHEMA [None]
  - DISTURBANCE IN ATTENTION [None]
  - SWELLING FACE [None]
